FAERS Safety Report 18612690 (Version 1)
Quarter: 2020Q4

REPORT INFORMATION
  Report Type: Spontaneous
  Country: IT (occurrence: IT)
  Receive Date: 20201214
  Receipt Date: 20201214
  Transmission Date: 20210114
  Serious: Yes (Hospitalization, Other)
  Sender: FDA-Public Use
  Company Number: IT-GLAXOSMITHKLINE-IT2020GSK246996

PATIENT
  Age: 4 Year
  Sex: Female

DRUGS (3)
  1. AMOXICILLIN. [Concomitant]
     Active Substance: AMOXICILLIN
     Indication: UPPER RESPIRATORY TRACT INFECTION
     Dosage: UNK
  2. SODIUM VALPROAT [Concomitant]
     Active Substance: VALPROATE SODIUM
     Indication: SEIZURE
     Dosage: UNK
  3. LAMOTRIGINE. [Suspect]
     Active Substance: LAMOTRIGINE
     Indication: SEIZURE
     Dosage: UNK

REACTIONS (22)
  - Rash [Recovered/Resolved]
  - Skin disorder [Recovered/Resolved]
  - Upper respiratory tract infection [Recovered/Resolved]
  - Mouth ulceration [Recovered/Resolved]
  - Blister [Recovered/Resolved]
  - Nikolsky^s sign [Unknown]
  - Pyrexia [Recovered/Resolved]
  - Tachycardia [Recovered/Resolved]
  - Stomatitis [Recovered/Resolved]
  - Conjunctivitis [Recovered/Resolved]
  - Mucosal disorder [Recovered/Resolved]
  - Dysphagia [Recovered/Resolved]
  - Corneal abrasion [Not Recovered/Not Resolved]
  - Oropharyngeal pain [Recovered/Resolved]
  - Aspartate aminotransferase increased [Recovered/Resolved]
  - Neutrophilia [Recovered/Resolved]
  - Skin lesion [Recovered/Resolved]
  - SJS-TEN overlap [Recovered/Resolved]
  - Rash macular [Recovered/Resolved]
  - Type IV hypersensitivity reaction [Recovered/Resolved]
  - Malaise [Recovered/Resolved]
  - Macule [Recovered/Resolved]
